FAERS Safety Report 20537185 (Version 1)
Quarter: 2022Q1

REPORT INFORMATION
  Report Type: Spontaneous
  Country: US (occurrence: US)
  Receive Date: 20220302
  Receipt Date: 20220302
  Transmission Date: 20220423
  Serious: No
  Sender: FDA-Public Use
  Company Number: US-PFIZER INC-2021718697

PATIENT
  Age: 45 Year
  Sex: Female

DRUGS (2)
  1. XELJANZ XR [Suspect]
     Active Substance: TOFACITINIB CITRATE
     Dosage: 11 MG
     Dates: start: 20201215, end: 20210602
  2. XELJANZ XR [Suspect]
     Active Substance: TOFACITINIB CITRATE
     Dosage: 11 MG
     Dates: start: 20210406

REACTIONS (4)
  - Vestibular migraine [Recovered/Resolved]
  - Ear disorder [Recovered/Resolved]
  - Vertigo [Recovered/Resolved]
  - Headache [Recovered/Resolved]
